FAERS Safety Report 8538420-6 (Version None)
Quarter: 2012Q3

REPORT INFORMATION
  Report Type: 
  Country: None (occurrence: None)
  Receive Date: 20120726
  Receipt Date: 20120714
  Transmission Date: 20120928
  Serious: Yes (Other)
  Sender: FDA-Public Use
  Company Number: DE-PAR PHARMACEUTICAL, INC-2012SCPR004510

PATIENT

DRUGS (3)
  1. RISPERIDONE [Suspect]
     Dosage: 1.5 MG, / DAY
     Route: 065
  2. RISPERIDONE [Suspect]
     Indication: PRODUCT USED FOR UNKNOWN INDICATION
     Dosage: 0.25 MG, TID
     Route: 065
  3. RISPERIDONE [Suspect]
     Dosage: 0.25 MG, BID
     Route: 065
     Dates: end: 20110701

REACTIONS (5)
  - PARKINSONISM [None]
  - PLEUROTHOTONUS [None]
  - DEMENTIA WITH LEWY BODIES [None]
  - DEMENTIA ALZHEIMER'S TYPE [None]
  - CEREBROVASCULAR DISORDER [None]
